FAERS Safety Report 18510178 (Version 1)
Quarter: 2020Q4

REPORT INFORMATION
  Report Type: Spontaneous
  Country: PL (occurrence: PL)
  Receive Date: 20201117
  Receipt Date: 20201117
  Transmission Date: 20210114
  Serious: Yes (Other)
  Sender: FDA-Public Use
  Company Number: NVSC2020PL303572

PATIENT
  Age: 74 Year
  Sex: Female
  Weight: 44 kg

DRUGS (2)
  1. METYPRED [Concomitant]
     Active Substance: METHYLPREDNISOLONE
     Indication: PRODUCT USED FOR UNKNOWN INDICATION
     Dosage: UNK
     Route: 065
  2. METHOTREXATE. [Suspect]
     Active Substance: METHOTREXATE
     Indication: RHEUMATOID ARTHRITIS
     Dosage: 5 MG, QD (DRUG TAKEN FOR TWO MONTHS)
     Route: 048
     Dates: end: 20200221

REACTIONS (3)
  - Fungal pharyngitis [Recovering/Resolving]
  - Pancytopenia [Recovering/Resolving]
  - Oral mucosa erosion [Recovering/Resolving]

NARRATIVE: CASE EVENT DATE: 20200221
